FAERS Safety Report 22288899 (Version 1)
Quarter: 2023Q2

REPORT INFORMATION
  Report Type: Spontaneous
  Country: US (occurrence: US)
  Receive Date: 20230505
  Receipt Date: 20230505
  Transmission Date: 20230722
  Serious: Yes (Other)
  Sender: FDA-Public Use
  Company Number: US-PFIZER INC-202300177296

PATIENT
  Age: 76 Year
  Sex: Female
  Weight: 70.31 kg

DRUGS (7)
  1. ZITHROMAX [Suspect]
     Active Substance: AZITHROMYCIN DIHYDRATE
     Indication: Lyme disease
     Dosage: 250 MG, 2X/DAY(TWICE A DAY A TABLET)
  2. ZITHROMAX [Suspect]
     Active Substance: AZITHROMYCIN DIHYDRATE
     Indication: Cat scratch disease
  3. ZITHROMAX [Suspect]
     Active Substance: AZITHROMYCIN DIHYDRATE
     Indication: Relapsing fever
  4. ZITHROMAX [Suspect]
     Active Substance: AZITHROMYCIN DIHYDRATE
     Indication: Cat scratch disease
     Dosage: UNK(2 PILL THE FIRST OF THE WEEK LET^S SAY ON MONDAY)
     Route: 048
  5. ZITHROMAX [Suspect]
     Active Substance: AZITHROMYCIN DIHYDRATE
     Dosage: UNK(ONE FOR FOUR DAYS)
  6. SULFAMETHOXAZOLE [Suspect]
     Active Substance: SULFAMETHOXAZOLE
     Dosage: UNK
  7. ARMOUR THYROID [Concomitant]
     Active Substance: THYROID, PORCINE
     Dosage: 50 UG, 1X/DAY

REACTIONS (9)
  - Syncope [Unknown]
  - Illness [Unknown]
  - Abdominal discomfort [Unknown]
  - Intracranial mass [Unknown]
  - COVID-19 [Unknown]
  - Confusional state [Unknown]
  - Cardiac disorder [Unknown]
  - Dyspnoea [Unknown]
  - Off label use [Unknown]
